FAERS Safety Report 6778890-7 (Version None)
Quarter: 2010Q2

REPORT INFORMATION
  Report Type: 
  Country: None (occurrence: None)
  Receive Date: 20100618
  Receipt Date: 20100611
  Transmission Date: 20101027
  Serious: Yes (Disabling)
  Sender: FDA-Public Use
  Company Number: US-KINGPHARMUSA00001-K201000675

PATIENT
  Age: 77 Year
  Sex: Female

DRUGS (1)
  1. FLECTOR [Suspect]
     Indication: BACK PAIN
     Dosage: 1 PATCH, EVERY 12 HOURS
     Route: 061
     Dates: start: 20100521, end: 20100527

REACTIONS (2)
  - DEAFNESS [None]
  - HYPOACUSIS [None]
